FAERS Safety Report 5668901-4 (Version None)
Quarter: 2008Q1

REPORT INFORMATION
  Report Type: 
  Country: None (occurrence: None)
  Receive Date: 20080312
  Receipt Date: 20080312
  Transmission Date: 20080703
  Serious: No
  Sender: FDA-Public Use
  Company Number: None

PATIENT
  Age: 85 Year
  Sex: Female
  Weight: 56.246 kg

DRUGS (2)
  1. NEOSTIGMINE, BAXTER, 1:1000 [Suspect]
     Indication: MYASTHENIA GRAVIS
     Dosage: 2 MG FIRST DOSE IVP
     Route: 042
     Dates: start: 20080207
  2. PYRIDOSTIGMINE BROMIDE [Concomitant]

REACTIONS (6)
  - DIARRHOEA [None]
  - DIZZINESS [None]
  - HEART RATE DECREASED [None]
  - HYPERHIDROSIS [None]
  - NAUSEA [None]
  - SALIVARY HYPERSECRETION [None]
